FAERS Safety Report 9092599 (Version 1)
Quarter: 2013Q1

REPORT INFORMATION
  Report Type: Spontaneous
  Country: IE (occurrence: IE)
  Receive Date: 20130131
  Receipt Date: 20130131
  Transmission Date: 20140127
  Serious: Yes (Other)
  Sender: FDA-Public Use
  Company Number: IE-B.I. PHARMACEUTICALS,INC./RIDGEFIELD-2013-BI-02554GD

PATIENT
  Sex: Female

DRUGS (6)
  1. PRAMIPEXOLE [Suspect]
     Indication: PARKINSON^S DISEASE
     Dosage: 0.18 MG
  2. AMANTADINE [Suspect]
     Indication: PARKINSON^S DISEASE
     Dosage: 300 MG
  3. SELEGILINE [Suspect]
     Indication: PARKINSON^S DISEASE
     Dosage: 5 MG
  4. STALEVO [Suspect]
     Indication: PARKINSON^S DISEASE
     Dosage: 600 MG
  5. ESCITALOPRAM [Concomitant]
     Indication: DEPRESSION
     Dosage: 10 MG
  6. ALPRAZOLAM [Concomitant]
     Dosage: 0.5 MG

REACTIONS (8)
  - Impulse-control disorder [Unknown]
  - Hypersexuality [Unknown]
  - Depressed mood [Unknown]
  - Poisoning deliberate [Unknown]
  - Emotional distress [Unknown]
  - Anhedonia [Unknown]
  - Crying [Unknown]
  - Decreased appetite [Unknown]
